FAERS Safety Report 8812586 (Version 4)
Quarter: 2012Q4

REPORT INFORMATION
  Report Type: 
  Country: US (occurrence: US)
  Receive Date: 20120927
  Receipt Date: 20121019
  Transmission Date: 20130627
  Serious: Yes (Other)
  Sender: FDA-Public Use
  Company Number: US-JNJFOC-20120804910

PATIENT
  Age: 43 None
  Sex: Female

DRUGS (3)
  1. TYLENOL COLD MULTI-SYMPTOM SEVERE [Suspect]
     Indication: SINUS CONGESTION
     Dosage: 2 tablespoons
     Route: 048
     Dates: start: 20120807, end: 20120807
  2. TYLENOL COLD MULTI-SYMPTOM SEVERE [Suspect]
     Indication: SINUS CONGESTION
     Dosage: 1 tablespoon
     Route: 048
     Dates: start: 201207
  3. UNKNOWN MEDICATION [Concomitant]
     Route: 065

REACTIONS (4)
  - Bronchitis [Recovered/Resolved]
  - Insomnia [Recovered/Resolved]
  - Dyspepsia [Recovered/Resolved]
  - Product label issue [Unknown]
